FAERS Safety Report 5227730-6 (Version None)
Quarter: 2007Q1

REPORT INFORMATION
  Report Type: 
  Country: None (occurrence: None)
  Receive Date: 20070202
  Receipt Date: 20070124
  Transmission Date: 20070707
  Serious: Yes (Hospitalization, Other)
  Sender: FDA-Public Use
  Company Number: US-PFIZER INC-2007007405

PATIENT
  Sex: Male
  Weight: 127 kg

DRUGS (8)
  1. CHANTIX [Suspect]
     Indication: SMOKING CESSATION THERAPY
  2. SINGULAIR [Concomitant]
  3. ZYRTEC [Concomitant]
  4. ASTHMADEX [Concomitant]
  5. ALBUTEROL [Concomitant]
     Dosage: FREQ:AS NEEDED
  6. ALLEGRA-D 12 HOUR [Concomitant]
  7. FLONASE [Concomitant]
  8. ASTELIN [Concomitant]

REACTIONS (2)
  - PNEUMONIA [None]
  - PULMONARY EMBOLISM [None]
